FAERS Safety Report 14330316 (Version 3)
Quarter: 2018Q1

REPORT INFORMATION
  Report Type: Other
  Country: JP (occurrence: JP)
  Receive Date: 20171227
  Receipt Date: 20180213
  Transmission Date: 20180509
  Serious: Yes (Other)
  Sender: FDA-Public Use
  Company Number: JP-KOWA-17JP002878

PATIENT
  Age: 65 Year
  Sex: Female
  Weight: 63 kg

DRUGS (2)
  1. PITAVASTATIN CA [Suspect]
     Active Substance: PITAVASTATIN CALCIUM
     Indication: PRODUCT USED FOR UNKNOWN INDICATION
     Dosage: 1 MG, QD
     Route: 048
     Dates: start: 20141015, end: 20150624
  2. LIVALO [Suspect]
     Active Substance: PITAVASTATIN CALCIUM
     Indication: DYSLIPIDAEMIA
     Dosage: 1 MG, QD
     Route: 048
     Dates: start: 20140206, end: 20141014

REACTIONS (3)
  - Hepatic function abnormal [Unknown]
  - Blood creatine phosphokinase increased [Unknown]
  - Myopathy [Unknown]

NARRATIVE: CASE EVENT DATE: 201505
